FAERS Safety Report 24867828 (Version 1)
Quarter: 2025Q1

REPORT INFORMATION
  Report Type: Spontaneous
  Country: US (occurrence: None)
  Receive Date: 20250117
  Receipt Date: 20250117
  Transmission Date: 20250408
  Serious: No
  Sender: FDA-CTU
  Company Number: None

PATIENT
  Age: 53 Year
  Sex: Male

DRUGS (2)
  1. BOTOX [Suspect]
     Active Substance: ONABOTULINUMTOXINA
     Route: 030
     Dates: start: 20240917, end: 20250109
  2. BOTOX [Concomitant]
     Active Substance: ONABOTULINUMTOXINA
     Dates: start: 20240917, end: 20250109

REACTIONS (2)
  - Feeling abnormal [None]
  - Post procedural complication [None]

NARRATIVE: CASE EVENT DATE: 20250109
